FAERS Safety Report 8847235 (Version 1)
Quarter: 2012Q4

REPORT INFORMATION
  Report Type: 
  Country: IN (occurrence: IN)
  Receive Date: 20121018
  Receipt Date: 20121018
  Transmission Date: 20130627
  Serious: Yes (Other)
  Sender: FDA-Public Use
  Company Number: PHHY2012IN089854

PATIENT
  Age: 33 Year
  Sex: Female

DRUGS (3)
  1. ARIPIPRAZOLE [Suspect]
     Indication: MAJOR DEPRESSION
     Dosage: 10 mg,day
  2. ARIPIPRAZOLE [Interacting]
     Indication: SCHIZOAFFECTIVE DISORDER DEPRESSIVE TYPE
     Dosage: 30 mg, day
  3. FLUOXETINE [Interacting]
     Indication: DEPRESSION
     Dosage: 20 mg, day

REACTIONS (10)
  - Extrapyramidal disorder [Recovered/Resolved]
  - Dystonia [Recovered/Resolved]
  - Parkinsonism [Recovered/Resolved]
  - Akathisia [Recovered/Resolved]
  - Restless legs syndrome [Recovered/Resolved]
  - Movement disorder [Recovered/Resolved]
  - Anxiety [Recovered/Resolved]
  - Drooling [Recovered/Resolved]
  - Tremor [Recovered/Resolved]
  - Drug interaction [Recovered/Resolved]
